FAERS Safety Report 20546969 (Version 1)
Quarter: 2022Q1

REPORT INFORMATION
  Report Type: Other
  Country: US (occurrence: None)
  Receive Date: 20220303
  Receipt Date: 20220303
  Transmission Date: 20220424
  Serious: Yes (Other)
  Sender: FDA-Public Use
  Company Number: US-ROCHE-2992287

PATIENT
  Age: 49 Year
  Sex: Female
  Weight: 86.6 kg

DRUGS (4)
  1. OCREVUS [Suspect]
     Active Substance: OCRELIZUMAB
     Indication: Multiple sclerosis
     Route: 042
     Dates: start: 20181202
  2. AMLODIPINE [Concomitant]
     Active Substance: AMLODIPINE BESYLATE
     Dosage: ONGOING : EVERY NIGHT AT BED TIME
     Route: 048
     Dates: start: 20210101
  3. VITAMIN D3 [Concomitant]
     Active Substance: CHOLECALCIFEROL
     Dosage: ONGOING : ONCE DAILY
     Dates: start: 20180501
  4. LISINOPRIL [Concomitant]
     Active Substance: LISINOPRIL
     Dosage: TAKE 20 MG BY MOUTH ONCE DAILY

REACTIONS (1)
  - Breast cancer [Not Recovered/Not Resolved]

NARRATIVE: CASE EVENT DATE: 20211109
